FAERS Safety Report 20670819 (Version 2)
Quarter: 2022Q2

REPORT INFORMATION
  Report Type: Spontaneous
  Country: ES (occurrence: ES)
  Receive Date: 20220404
  Receipt Date: 20220408
  Transmission Date: 20220721
  Serious: Yes (Other)
  Sender: FDA-Public Use
  Company Number: ES-TEVA-2022-ES-2009330

PATIENT
  Age: 56 Year
  Sex: Female
  Weight: 75 kg

DRUGS (6)
  1. IRINOTECAN HYDROCHLORIDE [Suspect]
     Active Substance: IRINOTECAN HYDROCHLORIDE
     Indication: Colon cancer
     Dosage: UNK
  2. OXALIPLATIN [Suspect]
     Active Substance: OXALIPLATIN
     Indication: Colon cancer
     Dosage: UNK
  3. LEUCOVORIN CALCIUM [Suspect]
     Active Substance: LEUCOVORIN CALCIUM
     Indication: Colon cancer
     Dosage: UNK
     Route: 065
  4. AFLIBERCEPT [Suspect]
     Active Substance: AFLIBERCEPT
     Indication: Colon cancer
     Dosage: UNK
  5. FLUOROURACIL [Suspect]
     Active Substance: FLUOROURACIL
     Indication: Colon cancer
     Dosage: UNK
  6. LEUCOVORIN CALCIUM [Concomitant]
     Active Substance: LEUCOVORIN CALCIUM
     Indication: Colon cancer
     Dosage: UNK

REACTIONS (1)
  - Secondary hypertension [Recovering/Resolving]
